FAERS Safety Report 23774483 (Version 1)
Quarter: 2024Q2

REPORT INFORMATION
  Report Type: Spontaneous
  Country: US (occurrence: US)
  Receive Date: 20240423
  Receipt Date: 20240423
  Transmission Date: 20240715
  Serious: Yes (Hospitalization)
  Sender: FDA-Public Use
  Company Number: US-AFAXYS PHARMA, LLC-2024AFX00005

PATIENT
  Age: 59 Year
  Sex: Male

DRUGS (6)
  1. LIDOCAINE [Suspect]
     Active Substance: LIDOCAINE
     Indication: Chest pain
     Dosage: UNK, EVERY 6 HOURS
     Route: 048
  2. LIDOCAINE [Suspect]
     Active Substance: LIDOCAINE
     Indication: Nausea
  3. LIDOCAINE [Suspect]
     Active Substance: LIDOCAINE
     Indication: Vomiting
  4. GI COCKTAIL [Concomitant]
     Indication: Chest pain
     Dosage: UNK, EVERY 6 HOURS
     Route: 048
  5. GI COCKTAIL [Concomitant]
     Indication: Nausea
  6. GI COCKTAIL [Concomitant]
     Indication: Vomiting

REACTIONS (1)
  - Bundle branch block left [Recovered/Resolved]
